FAERS Safety Report 17356637 (Version 2)
Quarter: 2020Q1

REPORT INFORMATION
  Report Type: Spontaneous
  Country: US (occurrence: US)
  Receive Date: 20200131
  Receipt Date: 20200203
  Transmission Date: 20200409
  Serious: Yes (Hospitalization)
  Sender: FDA-Public Use
  Company Number: US-ELI_LILLY_AND_COMPANY-US202001011361

PATIENT
  Age: 56 Year
  Sex: Male

DRUGS (1)
  1. HUMULIN 70/30 [Suspect]
     Active Substance: INSULIN HUMAN
     Indication: TYPE 2 DIABETES MELLITUS
     Dosage: 20 U, DAILY
     Route: 058

REACTIONS (9)
  - Loss of consciousness [Recovered/Resolved]
  - Feeling jittery [Recovered/Resolved]
  - Musculoskeletal stiffness [Recovered/Resolved]
  - Shock hypoglycaemic [Recovered/Resolved]
  - Nervousness [Recovered/Resolved]
  - Bronchitis [Recovered/Resolved]
  - Discomfort [Recovered/Resolved]
  - Blood glucose decreased [Recovered/Resolved]
  - Decreased appetite [Recovered/Resolved]

NARRATIVE: CASE EVENT DATE: 201912
